FAERS Safety Report 14894370 (Version 1)
Quarter: 2018Q2

REPORT INFORMATION
  Report Type: Spontaneous
  Country: ZA (occurrence: ZA)
  Receive Date: 20180515
  Receipt Date: 20180515
  Transmission Date: 20180711
  Serious: No
  Sender: FDA-Public Use
  Company Number: ZA-LUPIN PHARMACEUTICALS INC.-2017-02711

PATIENT
  Sex: Male

DRUGS (1)
  1. DYNAVAL CO [Suspect]
     Active Substance: HYDROCHLOROTHIAZIDE\VALSARTAN
     Indication: HYPERTENSION
     Dosage: 160/12.5,QD
     Route: 048
     Dates: start: 20170425

REACTIONS (1)
  - Blood pressure decreased [Unknown]
